FAERS Safety Report 8189488-0 (Version None)
Quarter: 2012Q1

REPORT INFORMATION
  Report Type: 
  Country: None (occurrence: None)
  Receive Date: 20120307
  Receipt Date: 20120303
  Transmission Date: 20120608
  Serious: No
  Sender: FDA-Public Use
  Company Number: US-PFIZER INC-2012057168

PATIENT
  Sex: Female
  Weight: 92.517 kg

DRUGS (2)
  1. CELEBREX [Suspect]
     Indication: ARTHRITIS
     Dosage: 200 MG, DAILY
     Route: 048
  2. WARFARIN SODIUM [Concomitant]
     Indication: ANTICOAGULANT THERAPY
     Dosage: 5MG DAILY ONE DAY AND 2.5MG DAILY ANOTHER DAY

REACTIONS (2)
  - OEDEMA MOUTH [None]
  - HYPOAESTHESIA ORAL [None]
